FAERS Safety Report 7415694-6 (Version None)
Quarter: 2011Q2

REPORT INFORMATION
  Report Type: 
  Country: None (occurrence: None)
  Receive Date: 20110414
  Receipt Date: 20110411
  Transmission Date: 20111010
  Serious: Yes (Hospitalization)
  Sender: FDA-Public Use
  Company Number: US-MERCK-1104USA01130

PATIENT
  Age: 73 Year
  Sex: Female

DRUGS (4)
  1. REVLIMID [Concomitant]
     Indication: MULTIPLE MYELOMA
     Route: 048
     Dates: start: 20090401
  2. ZOMETA [Suspect]
     Route: 065
  3. REVLIMID [Concomitant]
     Route: 048
     Dates: start: 20101201
  4. FOSAMAX [Suspect]
     Route: 048

REACTIONS (5)
  - IMPAIRED HEALING [None]
  - OSTEONECROSIS OF JAW [None]
  - NEUTROPENIA [None]
  - THROMBOCYTOPENIA [None]
  - ORAL DISORDER [None]
